FAERS Safety Report 9938001 (Version 2)
Quarter: 2014Q1

REPORT INFORMATION
  Report Type: Report from Study
  Country: CA (occurrence: CA)
  Receive Date: 20140303
  Receipt Date: 20140303
  Transmission Date: 20141002
  Serious: Yes (Life-Threatening, Hospitalization, Disabling)
  Sender: FDA-Public Use
  Company Number: CA-ROCHE-1023280

PATIENT
  Age: 60 Year
  Sex: Male
  Weight: 108.6 kg

DRUGS (60)
  1. OBINUTUZUMAB [Suspect]
     Indication: DIFFUSE LARGE B-CELL LYMPHOMA
     Dosage: DOSE CONCENTRATION OF LAST OBINUTUZUMAB:3.64 ML, MOST RECENT DOSE ON: 14/MAY/2012
     Route: 042
     Dates: start: 20111205
  2. OBINUTUZUMAB [Suspect]
     Dosage: DOSE CONCENTRATION OF LAST OBINUTUZUMAB: 3.64 ML, MOST RECENT DOSE ON: 28/DEC/2011.
     Route: 042
  3. CYCLOPHOSPHAMIDE [Suspect]
     Indication: DIFFUSE LARGE B-CELL LYMPHOMA
     Dosage: LAST DOSE TAKEN: 111 MG, ON 02/APR/2012
     Route: 042
     Dates: start: 20111205
  4. DOXORUBICINE [Suspect]
     Indication: DIFFUSE LARGE B-CELL LYMPHOMA
     Dosage: LAST DOSE TAKEN: 111 MG, ON 02/APR/2012
     Route: 042
     Dates: start: 20111205
  5. VINCRISTINE [Suspect]
     Indication: DIFFUSE LARGE B-CELL LYMPHOMA
     Dosage: LAST DOSE PRIOR TO EVENT: 02/APR/2012
     Route: 040
     Dates: start: 20111205
  6. PREDNISOLONE [Suspect]
     Indication: DIFFUSE LARGE B-CELL LYMPHOMA
     Dosage: LAST DOSE TAKEN: 80 MG, ON 14/MAY/2012
     Route: 048
     Dates: start: 20111205
  7. GRANISETRON [Concomitant]
     Route: 065
     Dates: start: 20111205, end: 20120515
  8. SOLU-MEDROL [Concomitant]
     Indication: HYPOTENSION
     Route: 065
     Dates: start: 20111216, end: 20111216
  9. RANITIDINE [Concomitant]
     Route: 065
     Dates: start: 20111205, end: 20120515
  10. ACETAMINOPHEN [Concomitant]
     Indication: PYREXIA
     Route: 065
     Dates: start: 20111205, end: 20120515
  11. ACETAMINOPHEN [Concomitant]
     Indication: PNEUMONIA
     Route: 065
     Dates: start: 20121117, end: 20121121
  12. INSULIN NPH [Concomitant]
     Indication: DIABETES MELLITUS
  13. OXYCOCET [Concomitant]
     Indication: PAIN IN EXTREMITY
     Route: 065
     Dates: start: 20120703, end: 20120704
  14. SAXAGLIPTIN HYDROCHLORIDE [Concomitant]
     Indication: DIABETES MELLITUS
  15. PIOGLITAZONE HYDROCHLORIDE [Concomitant]
     Indication: DIABETES MELLITUS
     Route: 065
     Dates: end: 20120625
  16. METFORMIN [Concomitant]
     Indication: DIABETES MELLITUS
  17. GLUCOSAMINE SULFATE [Concomitant]
  18. CRESTOR [Concomitant]
     Indication: HYPERCHOLESTEROLAEMIA
  19. FENOFIBRATE MICRO [Concomitant]
     Indication: HYPERCHOLESTEROLAEMIA
     Route: 065
     Dates: end: 20120725
  20. AVAPRO [Concomitant]
     Indication: HYPERTENSION
     Route: 065
     Dates: end: 20120725
  21. AVAPRO [Concomitant]
     Route: 065
     Dates: start: 20120725
  22. FLUDROCORTISONE [Concomitant]
     Indication: PYREXIA
     Route: 065
     Dates: start: 20120109, end: 20120109
  23. FLUDROCORTISONE [Concomitant]
     Indication: ADDISON^S DISEASE
     Route: 065
     Dates: start: 20120725, end: 20120725
  24. FLUDROCORTISONE [Concomitant]
     Indication: PNEUMONIA
     Route: 065
     Dates: start: 20120326
  25. FLUDROCORTISONE [Concomitant]
     Route: 065
     Dates: start: 20120703, end: 20120725
  26. FLUDROCORTISONE [Concomitant]
     Route: 065
     Dates: start: 20121117, end: 20121121
  27. OXYCOCET [Concomitant]
  28. ALEVE [Concomitant]
     Indication: PAIN IN EXTREMITY
     Route: 065
     Dates: start: 20111108
  29. HYDROCORTISONE [Concomitant]
     Indication: PYREXIA
     Route: 065
     Dates: start: 20120109, end: 20120109
  30. HYDROCORTISONE [Concomitant]
     Indication: PNEUMONIA
     Route: 065
     Dates: start: 20121117, end: 20121119
  31. HUMULIN [Concomitant]
     Indication: DIABETES MELLITUS
     Route: 065
     Dates: start: 20120109, end: 20120109
  32. HUMULIN [Concomitant]
     Route: 065
     Dates: start: 20121117, end: 20121121
  33. CLAVULIN [Concomitant]
     Indication: CELLULITIS
     Route: 065
     Dates: start: 201101, end: 201102
  34. ENOXAPARIN [Concomitant]
     Indication: PNEUMONIA
     Route: 065
     Dates: start: 20120129, end: 20120129
  35. ENOXAPARIN [Concomitant]
     Route: 065
     Dates: start: 20121117, end: 20121121
  36. ACETAMINOPHEN [Concomitant]
     Route: 065
     Dates: start: 20111205, end: 20120515
  37. RANITIDINE [Concomitant]
     Route: 065
     Dates: start: 20111205, end: 20120515
  38. VITAMIN B12 [Concomitant]
     Indication: VITAMIN B12 DEFICIENCY
     Route: 065
     Dates: start: 20120326
  39. SILVER SULFADIAZINE [Concomitant]
     Indication: BLISTER
     Route: 065
     Dates: start: 20120327
  40. VALTREX [Concomitant]
     Indication: HERPES SIMPLEX
     Route: 065
     Dates: start: 20120423
  41. KETOROLAC [Concomitant]
     Indication: PAIN
     Route: 065
     Dates: start: 20120707, end: 20120725
  42. COLCHICINE [Concomitant]
     Indication: PAIN
     Route: 065
     Dates: start: 20120714, end: 20120714
  43. NEUPOGEN [Concomitant]
     Indication: NEUTROPENIA
     Route: 065
     Dates: start: 20120717, end: 20120720
  44. FENTANYL [Concomitant]
     Indication: PAIN
     Route: 065
     Dates: start: 20120707, end: 20120709
  45. MORPHINE [Concomitant]
     Indication: PAIN
     Route: 065
     Dates: start: 20120707, end: 20120725
  46. DOCUSATE SODIUM [Concomitant]
     Indication: CONSTIPATION
     Route: 065
     Dates: start: 20120707, end: 20120725
  47. HEPARIN (BOLUS) [Concomitant]
     Indication: THROMBOSIS
     Route: 065
     Dates: start: 20120703, end: 20120714
  48. MOMETASONE [Concomitant]
     Route: 065
     Dates: start: 20120714, end: 20120725
  49. POTASSIUM CHLORIDE [Concomitant]
     Indication: BLOOD POTASSIUM DECREASED
     Route: 065
     Dates: start: 20120703, end: 20120706
  50. POTASSIUM CHLORIDE [Concomitant]
     Route: 065
     Dates: start: 20121119, end: 20121120
  51. NACL 0.9% BOLUS [Concomitant]
     Indication: DEHYDRATION
     Route: 065
     Dates: start: 20120719, end: 20120721
  52. ASCORBIC ACID [Concomitant]
     Route: 065
     Dates: start: 20111118
  53. IRBESARTAN [Concomitant]
     Indication: HYPERTENSION
     Route: 065
     Dates: start: 20121117, end: 20121121
  54. ONDANSETRON [Concomitant]
     Indication: NAUSEA
     Route: 065
     Dates: start: 20121117, end: 20121120
  55. IPRATROPIUM [Concomitant]
     Indication: PNEUMONIA
     Route: 065
     Dates: start: 20121117, end: 20121121
  56. AMOXICILLIN SODIUM/CLAVULANATE POTASSIUM [Concomitant]
     Indication: PNEUMONIA
     Route: 065
     Dates: start: 20121120, end: 20121127
  57. PIPERACILLIN SODIUM [Concomitant]
     Indication: PNEUMONIA
     Route: 065
     Dates: start: 20121117, end: 20121120
  58. AZITHROMYCIN [Concomitant]
     Indication: PNEUMONIA
     Route: 065
     Dates: start: 20121117, end: 20121117
  59. RABEPRAZOLE [Concomitant]
     Indication: DYSPEPSIA
     Route: 065
     Dates: start: 20130211
  60. CIPROFLOXACIN [Concomitant]
     Indication: URINARY TRACT INFECTION
     Route: 065
     Dates: start: 20130225, end: 20130307

REACTIONS (10)
  - Acute myocardial infarction [Recovered/Resolved]
  - Hypotension [Recovered/Resolved]
  - Chills [Recovered/Resolved]
  - Febrile neutropenia [Recovered/Resolved]
  - Cellulitis [Recovered/Resolved]
  - White blood cell count decreased [Recovered/Resolved]
  - Pyrexia [Recovered/Resolved]
  - Constipation [Recovered/Resolved]
  - Addison^s disease [Recovered/Resolved]
  - Cardiomyopathy [Not Recovered/Not Resolved]
